FAERS Safety Report 18725933 (Version 1)
Quarter: 2021Q1

REPORT INFORMATION
  Report Type: Spontaneous
  Country: US (occurrence: US)
  Receive Date: 20210111
  Receipt Date: 20210111
  Transmission Date: 20210419
  Serious: Yes (Hospitalization)
  Sender: FDA-Public Use
  Company Number: US-FARMAPROD-202012-1780

PATIENT
  Age: 62 Year
  Sex: Male

DRUGS (13)
  1. OXERVATE [Suspect]
     Active Substance: CENEGERMIN-BKBJ
     Indication: NEUROTROPHIC KERATOPATHY
     Route: 047
     Dates: start: 20201116
  2. INVELTYS [Concomitant]
     Active Substance: LOTEPREDNOL ETABONATE
  3. TOPIRAMATE. [Concomitant]
     Active Substance: TOPIRAMATE
  4. TECFIDERA [Concomitant]
     Active Substance: DIMETHYL FUMARATE
  5. RESTASIS [Concomitant]
     Active Substance: CYCLOSPORINE
  6. CENTRUM SILVER [Concomitant]
     Active Substance: MINERALS\VITAMINS
     Dosage: 0.4 MG/300 MCG/250 MCG
  7. BUTALBITAL?ACETAMINOPHEN?CAFFE [Concomitant]
  8. METFORMIN ER GASTRIC [Concomitant]
  9. LEVOTHYROXINE SODIUM. [Concomitant]
     Active Substance: LEVOTHYROXINE SODIUM
  10. GEMFIBROZIL. [Concomitant]
     Active Substance: GEMFIBROZIL
  11. ARTIFICIAL TEARS [Concomitant]
     Active Substance: GLYCERIN\HYPROMELLOSES\POLYETHYLENE GLYCOL 400
     Dosage: 0.1%?0.3%
  12. GENTEAL TEARS SEVERE [Concomitant]
     Active Substance: HYPROMELLOSE 2910 (4000 MPA.S)
  13. ASPIRIN. [Concomitant]
     Active Substance: ASPIRIN

REACTIONS (2)
  - Hip fracture [Unknown]
  - Fall [Unknown]

NARRATIVE: CASE EVENT DATE: 20201224
